FAERS Safety Report 7459904-8 (Version None)
Quarter: 2011Q2

REPORT INFORMATION
  Report Type: 
  Country: None (occurrence: None)
  Receive Date: 20110504
  Receipt Date: 20110504
  Transmission Date: 20111010
  Serious: No
  Sender: FDA-Public Use
  Company Number: None

PATIENT
  Age: 61 Year
  Sex: Female
  Weight: 73.0291 kg

DRUGS (1)
  1. NASONEX [Suspect]
     Indication: HYPERSENSITIVITY
     Dosage: 1SLIGHT SPRAY EACH NOSTRAL NASAL
     Route: 045
     Dates: start: 20110501, end: 20110502

REACTIONS (4)
  - VISUAL ACUITY REDUCED [None]
  - DRY EYE [None]
  - TREATMENT NONCOMPLIANCE [None]
  - ABNORMAL SENSATION IN EYE [None]
